FAERS Safety Report 5141537-X (Version None)
Quarter: 2006Q4

REPORT INFORMATION
  Report Type: 
  Country: None (occurrence: None)
  Receive Date: 20061026
  Receipt Date: 20061011
  Transmission Date: 20070319
  Serious: Yes (Congenital Anomaly, Other)
  Sender: FDA-Public Use
  Company Number: 2004-12-0593

PATIENT
  Age: 4 Day
  Sex: 0
  Weight: 2.5 kg

DRUGS (2)
  1. PEG-INTRON [Suspect]
     Indication: DRUG USE FOR UNKNOWN INDICATION
     Dosage: 180 MCG;QW;SC
     Route: 058
     Dates: start: 20040201, end: 20040601
  2. REBETOL [Suspect]
     Indication: DRUG USE FOR UNKNOWN INDICATION
     Dosage: 800 MG;QD;PO
     Route: 048
     Dates: start: 20040201, end: 20040601

REACTIONS (16)
  - ACQUIRED IMMUNODEFICIENCY SYNDROME [None]
  - APNOEA [None]
  - BLOOD IMMUNOGLOBULIN G DECREASED [None]
  - BODY HEIGHT BELOW NORMAL [None]
  - BRONCHIAL HYPERREACTIVITY [None]
  - BRONCHIOLITIS [None]
  - BRONCHOSPASM [None]
  - CAESAREAN SECTION [None]
  - CYANOSIS [None]
  - GASTROOESOPHAGEAL REFLUX DISEASE [None]
  - HYDROCELE [None]
  - JAUNDICE NEONATAL [None]
  - POOR PERIPHERAL CIRCULATION [None]
  - RESPIRATORY SYNCYTIAL VIRUS INFECTION [None]
  - TRANSMISSION OF DRUG VIA SEMEN [None]
  - VOMITING PROJECTILE [None]
